FAERS Safety Report 18245072 (Version 2)
Quarter: 2020Q4

REPORT INFORMATION
  Report Type: Report from Study
  Country: None (occurrence: US)
  Receive Date: 20200909
  Receipt Date: 20201218
  Transmission Date: 20210113
  Serious: Yes (Death)
  Sender: FDA-Public Use
  Company Number: US-ABBVIE-20K-163-3557895-00

PATIENT
  Sex: Male
  Weight: 56.75 kg

DRUGS (1)
  1. CREON [Suspect]
     Active Substance: PANCRELIPASE AMYLASE\PANCRELIPASE LIPASE\PANCRELIPASE PROTEASE
     Indication: PRODUCT USED FOR UNKNOWN INDICATION
     Dosage: 1 CAPSULE WITH MEALS
     Route: 048
     Dates: start: 2019, end: 202005

REACTIONS (7)
  - Pancreatic carcinoma metastatic [Fatal]
  - Pancreatic carcinoma [Fatal]
  - Weight decreased [Fatal]
  - Blood cholesterol increased [Unknown]
  - Hypersensitivity [Unknown]
  - Hypertension [Unknown]
  - Unevaluable event [Not Recovered/Not Resolved]

NARRATIVE: CASE EVENT DATE: 2020
